FAERS Safety Report 17946553 (Version 1)
Quarter: 2020Q2

REPORT INFORMATION
  Report Type: Spontaneous
  Country: US (occurrence: US)
  Receive Date: 20200625
  Receipt Date: 20200625
  Transmission Date: 20200714
  Serious: Yes (Hospitalization)
  Sender: FDA-Public Use
  Company Number: None

PATIENT
  Age: 71 Year
  Sex: Male
  Weight: 79.4 kg

DRUGS (2)
  1. TAXOL [Suspect]
     Active Substance: PACLITAXEL
     Dates: end: 20200609
  2. CARBOPLATIN. [Suspect]
     Active Substance: CARBOPLATIN
     Dates: end: 20200609

REACTIONS (7)
  - Dyspnoea [None]
  - Dehydration [None]
  - Lung hyperinflation [None]
  - Dysphagia [None]
  - Candida infection [None]
  - Pharyngeal ulceration [None]
  - Dizziness [None]

NARRATIVE: CASE EVENT DATE: 20200615
